FAERS Safety Report 7323521-0 (Version None)
Quarter: 2011Q1

REPORT INFORMATION
  Report Type: 
  Country: None (occurrence: None)
  Receive Date: 20110301
  Receipt Date: 20110218
  Transmission Date: 20110831
  Serious: Yes (Hospitalization)
  Sender: FDA-Public Use
  Company Number: PHHO2011GB01156

PATIENT
  Sex: Male
  Weight: 65 kg

DRUGS (4)
  1. ASPIRIN [Concomitant]
  2. OMEPRAZOLE [Concomitant]
  3. SIMVASTATIN [Concomitant]
  4. TASIGNA [Suspect]
     Indication: CHRONIC MYELOID LEUKAEMIA
     Dosage: 300 MG, BID
     Route: 048
     Dates: start: 20100927, end: 20110111

REACTIONS (7)
  - MYOCARDIAL INFARCTION [None]
  - ELECTROCARDIOGRAM ST SEGMENT DEPRESSION [None]
  - DEPRESSION [None]
  - DECREASED APPETITE [None]
  - CHEST PAIN [None]
  - DYSPNOEA [None]
  - WEIGHT DECREASED [None]
